FAERS Safety Report 9264245 (Version 1)
Quarter: 2013Q2

REPORT INFORMATION
  Report Type: Spontaneous
  Country: US (occurrence: US)
  Receive Date: 20130430
  Receipt Date: 20130430
  Transmission Date: 20140414
  Serious: No
  Sender: FDA-Public Use
  Company Number: US-ASTRAZENECA-2013SE25748

PATIENT
  Age: 80 Year
  Sex: Male
  Weight: 86.2 kg

DRUGS (2)
  1. SYMBICORT [Suspect]
     Indication: EMPHYSEMA
     Dosage: 160/4.5, 2 PUFFS BID
     Route: 055
     Dates: start: 201303
  2. IPRATROPIUM BROMIDE AND ALBETEROL SULFATE [Concomitant]
     Indication: EMPHYSEMA
     Dosage: ONE EVERY 6 HOURLY
     Route: 055

REACTIONS (2)
  - Sensation of foreign body [Not Recovered/Not Resolved]
  - Dysphonia [Not Recovered/Not Resolved]
